FAERS Safety Report 19810127 (Version 1)
Quarter: 2021Q3

REPORT INFORMATION
  Report Type: Spontaneous
  Country: US (occurrence: US)
  Receive Date: 20210904
  Receipt Date: 20210904
  Transmission Date: 20211014
  Serious: Yes (Death, Hospitalization)
  Sender: FDA-Public Use
  Company Number: None

PATIENT
  Age: 3 Year
  Sex: Female
  Weight: 14.3 kg

DRUGS (3)
  1. ZINECARD [Suspect]
     Active Substance: DEXRAZOXANE HYDROCHLORIDE
     Dates: end: 20210813
  2. CISPLATIN. [Suspect]
     Active Substance: CISPLATIN
     Dates: end: 20210819
  3. DOXORUBICIN HYDROCHLORIDE. [Suspect]
     Active Substance: DOXORUBICIN HYDROCHLORIDE
     Dates: end: 20210813

REACTIONS (10)
  - Respiratory distress [None]
  - Abdominal distension [None]
  - Gastrointestinal obstruction [None]
  - Metastases to lung [None]
  - Abdominal pain [None]
  - Disease progression [None]
  - Inflammation [None]
  - COVID-19 [None]
  - Blood culture positive [None]
  - Enterococcal infection [None]

NARRATIVE: CASE EVENT DATE: 20210807
